FAERS Safety Report 7991163-X (Version None)
Quarter: 2011Q4

REPORT INFORMATION
  Report Type: 
  Country: None (occurrence: None)
  Receive Date: 20111219
  Receipt Date: 20111212
  Transmission Date: 20120403
  Serious: Yes (Other)
  Sender: FDA-Public Use
  Company Number: US-US-EMD SERONO, INC.-7101540

PATIENT
  Sex: Male

DRUGS (3)
  1. ACETAMINOPHEN [Concomitant]
     Indication: PREMEDICATION
  2. REBIF [Suspect]
     Indication: MULTIPLE SCLEROSIS
     Route: 058
     Dates: start: 20061212
  3. UNKNOWN MEDICATION [Suspect]
     Indication: DEPRESSION

REACTIONS (6)
  - BALANCE DISORDER [None]
  - BACK PAIN [None]
  - DEPRESSED MOOD [None]
  - THYROID FUNCTION TEST ABNORMAL [None]
  - FATIGUE [None]
  - SUICIDAL BEHAVIOUR [None]
